FAERS Safety Report 23581378 (Version 1)
Quarter: 2024Q1

REPORT INFORMATION
  Report Type: Report from Study
  Country: JP (occurrence: JP)
  Receive Date: 20240229
  Receipt Date: 20240229
  Transmission Date: 20240409
  Serious: Yes (Death, Other)
  Sender: FDA-Public Use
  Company Number: JP-PFIZER INC-202400052546

PATIENT

DRUGS (4)
  1. CARBOPLATIN [Suspect]
     Active Substance: CARBOPLATIN
     Indication: Diffuse large B-cell lymphoma refractory
     Dosage: 700 MG/M2 ON DAY -3 TO DAY -2
  2. NIMUSTINE [Suspect]
     Active Substance: NIMUSTINE
     Indication: Diffuse large B-cell lymphoma refractory
     Dosage: 200 MG/M2 ON DAY -7 TO DAY -6
  3. ETOPOSIDE [Suspect]
     Active Substance: ETOPOSIDE
     Indication: Diffuse large B-cell lymphoma refractory
     Dosage: 30 MG/KG ON DAY -5 TO DAY -4
  4. CYCLOPHOSPHAMIDE [Suspect]
     Active Substance: CYCLOPHOSPHAMIDE
     Indication: Diffuse large B-cell lymphoma refractory
     Dosage: 60 MG/KG ON DAY -3 TO DAY -2

REACTIONS (1)
  - Cardiomyopathy [Fatal]
